FAERS Safety Report 5919154-0 (Version None)
Quarter: 2008Q4

REPORT INFORMATION
  Report Type: 
  Country: None (occurrence: None)
  Receive Date: 20081015
  Receipt Date: 20081009
  Transmission Date: 20090506
  Serious: Yes (Hospitalization)
  Sender: FDA-Public Use
  Company Number: SE-ABBOTT-08P-150-0478971-00

PATIENT
  Age: 35 Year
  Sex: Male

DRUGS (2)
  1. REDUCTIL [Suspect]
     Indication: OBESITY
     Dosage: DAILY
     Dates: start: 20070605, end: 20070801
  2. FELODIPINE [Concomitant]
     Indication: BLOOD PRESSURE

REACTIONS (3)
  - ARTERIAL THROMBOSIS [None]
  - FIBROMUSCULAR DYSPLASIA [None]
  - FLANK PAIN [None]
